FAERS Safety Report 7107239-5 (Version None)
Quarter: 2010Q4

REPORT INFORMATION
  Report Type: 
  Country: None (occurrence: None)
  Receive Date: 20101116
  Receipt Date: 20100920
  Transmission Date: 20110411
  Serious: No
  Sender: FDA-Public Use
  Company Number: US-ABBOTT-10P-163-0672005-00

PATIENT
  Sex: Male

DRUGS (3)
  1. SIMCOR [Suspect]
     Indication: PRODUCT USED FOR UNKNOWN INDICATION
     Dates: start: 20100918
  2. VIT E [Concomitant]
     Indication: PRODUCT USED FOR UNKNOWN INDICATION
  3. BLOOD SUGAR MEDICATION [Concomitant]
     Indication: PRODUCT USED FOR UNKNOWN INDICATION

REACTIONS (2)
  - BLOOD GLUCOSE DECREASED [None]
  - HYPERHIDROSIS [None]
